FAERS Safety Report 9207521 (Version 1)
Quarter: 2013Q2

REPORT INFORMATION
  Report Type: Spontaneous
  Country: US (occurrence: None)
  Receive Date: 20130402
  Receipt Date: 20130402
  Transmission Date: 20140414
  Serious: Yes (Life-Threatening, Hospitalization)
  Sender: FDA-Public Use
  Company Number: None

PATIENT
  Age: 28 Year
  Sex: Female
  Weight: 162 kg

DRUGS (1)
  1. ALYACEN 1/35 [Suspect]
     Indication: MENSTRUATION IRREGULAR
     Dosage: 1 TABLET
     Route: 048

REACTIONS (6)
  - Loss of consciousness [None]
  - Pulmonary embolism [None]
  - Left ventricular hypertrophy [None]
  - Pulmonary arterial pressure increased [None]
  - Troponin increased [None]
  - Deep vein thrombosis [None]
